FAERS Safety Report 6217096-7 (Version None)
Quarter: 2009Q2

REPORT INFORMATION
  Report Type: 
  Country: None (occurrence: None)
  Receive Date: 20090606
  Receipt Date: 20090525
  Transmission Date: 20091009
  Serious: Yes (Other)
  Sender: FDA-Public Use
  Company Number: JP-PFIZER INC-2009167629

PATIENT
  Age: 60 Year

DRUGS (2)
  1. VFEND [Suspect]
     Indication: KERATITIS FUNGAL
     Route: 042
  2. DIFLUCAN [Concomitant]
     Route: 047

REACTIONS (1)
  - PSYCHIATRIC SYMPTOM [None]
